FAERS Safety Report 17274601 (Version 3)
Quarter: 2020Q3

REPORT INFORMATION
  Report Type: Report from Study
  Country: US (occurrence: US)
  Receive Date: 20200115
  Receipt Date: 20200813
  Transmission Date: 20201102
  Serious: Yes (Hospitalization, Disabling, Other)
  Sender: FDA-Public Use
  Company Number: US-BIOMARINAP-US-2019-126902

PATIENT
  Age: 19 Year
  Sex: Female
  Weight: 36.8 kg

DRUGS (1)
  1. VIMIZIM [Suspect]
     Active Substance: ELOSULFASE ALFA
     Indication: MUCOPOLYSACCHARIDOSIS IV
     Dosage: 2 MILLIGRAM/KILOGRAM, QW
     Route: 042
     Dates: start: 20160901

REACTIONS (1)
  - Spinal cord compression [Recovered/Resolved]

NARRATIVE: CASE EVENT DATE: 20190930
